FAERS Safety Report 5863872-X (Version None)
Quarter: 2008Q3

REPORT INFORMATION
  Report Type: 
  Country: None (occurrence: None)
  Receive Date: 20080827
  Receipt Date: 20080818
  Transmission Date: 20090109
  Serious: Yes (Hospitalization)
  Sender: FDA-Public Use
  Company Number: GXKR2008GB07788

PATIENT
  Sex: Male

DRUGS (3)
  1. CODEINE PHOSPHATE (NGX) (CODEINE PHOSPHATE) UNKNOWN [Suspect]
  2. IBUPROFEN TABLETS [Suspect]
  3. SUBUTEX [Suspect]
     Dosage: 8 MG

REACTIONS (2)
  - SUBSTANCE ABUSE [None]
  - SYNCOPE [None]
